FAERS Safety Report 8459046-9 (Version None)
Quarter: 2012Q2

REPORT INFORMATION
  Report Type: 
  Country: None (occurrence: None)
  Receive Date: 20120622
  Receipt Date: 20120611
  Transmission Date: 20120825
  Serious: Yes (Hospitalization, Other)
  Sender: FDA-Public Use
  Company Number: US-ROCHE-1077537

PATIENT
  Sex: Male

DRUGS (3)
  1. PEGASYS [Suspect]
     Indication: HEPATITIS C
     Dates: start: 20120201
  2. RIBAVIRIN [Suspect]
     Indication: HEPATITIS C
     Dates: start: 20120201
  3. TELAPREVIR [Suspect]
     Indication: HEPATITIS C
     Dates: end: 20120424

REACTIONS (4)
  - DIARRHOEA [None]
  - SINUSITIS [None]
  - WHITE BLOOD CELL COUNT DECREASED [None]
  - GASTRIC DISORDER [None]
